FAERS Safety Report 18859268 (Version 1)
Quarter: 2021Q1

REPORT INFORMATION
  Report Type: Spontaneous
  Country: US (occurrence: US)
  Receive Date: 20210206
  Receipt Date: 20210206
  Transmission Date: 20210420
  Serious: Yes (Other)
  Sender: FDA-Public Use
  Company Number: None

PATIENT
  Age: 77 Year
  Sex: Female
  Weight: 72.57 kg

DRUGS (6)
  1. MONTELUKAST [Concomitant]
     Active Substance: MONTELUKAST SODIUM
  2. NP THYROID [Concomitant]
     Active Substance: LEVOTHYROXINE\LIOTHYRONINE
  3. QVAR REDIHALER [Suspect]
     Active Substance: BECLOMETHASONE DIPROPIONATE
     Indication: ASTHMA
     Dates: start: 20201115
  4. ALBUTEROL. [Concomitant]
     Active Substance: ALBUTEROL
  5. IVABRDINE [Concomitant]
  6. QVAR (USING OLD ACTUATOR) [Concomitant]

REACTIONS (4)
  - Product physical issue [None]
  - Product quality issue [None]
  - Drug ineffective [None]
  - Forced expiratory volume abnormal [None]

NARRATIVE: CASE EVENT DATE: 20210206
